FAERS Safety Report 20571859 (Version 1)
Quarter: 2022Q1

REPORT INFORMATION
  Report Type: Other
  Country: GB (occurrence: GB)
  Receive Date: 20220309
  Receipt Date: 20220309
  Transmission Date: 20220424
  Serious: Yes (Other)
  Sender: FDA-Public Use
  Company Number: GB-MHRA-MED-202202231244065040-AB0HQ

PATIENT
  Age: 3 Year
  Sex: Male

DRUGS (3)
  1. METRONIDAZOLE [Suspect]
     Active Substance: METRONIDAZOLE
     Indication: Ear infection
     Dosage: UNK, ORAL SOLUTION
     Route: 065
     Dates: start: 20220221, end: 20220223
  2. LANSOPRAZOLE [Suspect]
     Active Substance: LANSOPRAZOLE
     Indication: Ear infection
     Dosage: UNK, ORAL SOLUTION
     Route: 065
     Dates: start: 20220221, end: 20220223
  3. CLARITHROMYCIN [Suspect]
     Active Substance: CLARITHROMYCIN
     Indication: Ear infection
     Dosage: UNK
     Route: 065
     Dates: start: 20220221, end: 20220223

REACTIONS (1)
  - Vomiting [Recovered/Resolved]

NARRATIVE: CASE EVENT DATE: 20220223
